FAERS Safety Report 6301228-6 (Version None)
Quarter: 2009Q3

REPORT INFORMATION
  Report Type: 
  Country: None (occurrence: None)
  Receive Date: 20090806
  Receipt Date: 20090806
  Transmission Date: 20100115
  Serious: No
  Sender: FDA-Public Use
  Company Number: None

PATIENT
  Sex: Female
  Weight: 53.0709 kg

DRUGS (1)
  1. CIPRO [Suspect]
     Indication: ABDOMINAL PAIN
     Dosage: ONE TABLET TWICE DAILY
     Dates: start: 20090629

REACTIONS (1)
  - DRUG PRESCRIBING ERROR [None]
